FAERS Safety Report 10163296 (Version 2)
Quarter: 2014Q2

REPORT INFORMATION
  Report Type: Spontaneous
  Country: IT (occurrence: IT)
  Receive Date: 20140509
  Receipt Date: 20140509
  Transmission Date: 20141212
  Serious: Yes (Hospitalization)
  Sender: FDA-Public Use
  Company Number: IT-WATSON-2013-25199

PATIENT
  Age: 63 Year
  Sex: Female

DRUGS (3)
  1. LEVOFLOXACIN (UNKNOWN) [Suspect]
     Indication: OROPHARYNGEAL PAIN
     Dosage: 1 DF, DAILY
     Route: 048
     Dates: start: 20130512, end: 20130515
  2. TRIATEC [Concomitant]
     Indication: PRODUCT USED FOR UNKNOWN INDICATION
     Dosage: 2.5 MG, UNK
     Route: 048
  3. SEQUACOR [Concomitant]
     Indication: PRODUCT USED FOR UNKNOWN INDICATION
     Dosage: 1.25 MG, UNK
     Route: 048

REACTIONS (1)
  - Rash generalised [Recovering/Resolving]
